FAERS Safety Report 25241489 (Version 2)
Quarter: 2025Q2

REPORT INFORMATION
  Report Type: Report from Study
  Country: CA (occurrence: CA)
  Receive Date: 20250425
  Receipt Date: 20250514
  Transmission Date: 20250717
  Serious: Yes (Hospitalization)
  Sender: ABBVIE
  Company Number: CA-ABBVIE-6244932

PATIENT
  Age: 85 Year
  Sex: Male

DRUGS (1)
  1. LUPRON [Suspect]
     Active Substance: LEUPROLIDE ACETATE
     Indication: Prostate cancer
     Dosage: FORM STRENGTH 22.5 MG
     Route: 030
     Dates: start: 20220124

REACTIONS (4)
  - Fall [Unknown]
  - Eye contusion [Unknown]
  - Upper limb fracture [Unknown]
  - Face injury [Unknown]

NARRATIVE: CASE EVENT DATE: 20250101
